FAERS Safety Report 18963161 (Version 1)
Quarter: 2021Q1

REPORT INFORMATION
  Report Type: Spontaneous
  Country: GB (occurrence: GB)
  Receive Date: 20210303
  Receipt Date: 20210303
  Transmission Date: 20210420
  Serious: Yes (Other)
  Sender: FDA-Public Use
  Company Number: NVSC2021GB040861

PATIENT

DRUGS (1)
  1. BROLUCIZUMAB. [Suspect]
     Active Substance: BROLUCIZUMAB
     Indication: PRODUCT USED FOR UNKNOWN INDICATION
     Dosage: UNK
     Route: 065
     Dates: start: 20210120

REACTIONS (5)
  - Uveitis [Not Recovered/Not Resolved]
  - Dry age-related macular degeneration [Unknown]
  - Anterior chamber cell [Unknown]
  - Vitreous floaters [Unknown]
  - Keratic precipitates [Unknown]
